FAERS Safety Report 8166712 (Version 3)
Quarter: 2012Q4

REPORT INFORMATION
  Report Type: 
  Country: US (occurrence: US)
  Receive Date: 20111003
  Receipt Date: 20121010
  Transmission Date: 20130627
  Serious: Yes (Hospitalization)
  Sender: FDA-Public Use
  Company Number: US-US-EMD SERONO, INC.-7084804

PATIENT
  Age: 71 None
  Sex: Female
  Weight: 73 kg

DRUGS (4)
  1. REBIF [Suspect]
     Indication: MULTIPLE SCLEROSIS
     Route: 058
     Dates: start: 20030617, end: 20110905
  2. METFORMIN [Suspect]
     Indication: TYPE 2 DIABETES MELLITUS
     Dates: end: 201109
  3. SULINDAC [Suspect]
     Indication: ARTHRITIS
     Dates: end: 201109
  4. UNSPECIFIED MEDICATIONS [Concomitant]
     Indication: PRODUCT USED FOR UNKNOWN INDICATION

REACTIONS (6)
  - Renal failure [Recovered/Resolved]
  - Trigeminal neuralgia [Recovered/Resolved]
  - Decreased appetite [Unknown]
  - Weight decreased [Unknown]
  - Abdominal discomfort [Unknown]
  - Vomiting [Unknown]
